FAERS Safety Report 9498451 (Version 1)
Quarter: 2013Q3

REPORT INFORMATION
  Report Type: Spontaneous
  Country: US (occurrence: None)
  Receive Date: 20130903
  Receipt Date: 20130903
  Transmission Date: 20140520
  Serious: No
  Sender: FDA-Public Use
  Company Number: None

PATIENT
  Age: 60 Year
  Sex: Female

DRUGS (1)
  1. STELARA [Suspect]
     Indication: PSORIATIC ARTHROPATHY
     Dosage: INJECT 90 MG UNDER THE SKIN EVERY 12 WEEKS
     Route: 058
     Dates: start: 20121128

REACTIONS (3)
  - Incorrect route of drug administration [None]
  - Injection site pain [None]
  - Wrong technique in drug usage process [None]
